FAERS Safety Report 18991273 (Version 3)
Quarter: 2021Q2

REPORT INFORMATION
  Report Type: Report from Study
  Country: BR (occurrence: BR)
  Receive Date: 20210310
  Receipt Date: 20210406
  Transmission Date: 20210717
  Serious: Yes (Other)
  Sender: FDA-Public Use
  Company Number: NVSC2021BR052376

PATIENT
  Age: 81 Year
  Sex: Female
  Weight: 51 kg

DRUGS (2)
  1. GLAUB [Concomitant]
     Active Substance: BRIMONIDINE TARTRATE
     Indication: GLAUCOMA
     Dosage: 1 DRP, QD (1 TIME IN MORING, 3 YEARS AGO)
     Route: 047
  2. TRAVATAN [Suspect]
     Active Substance: TRAVOPROST
     Indication: GLAUCOMA
     Dosage: 1 DRP, QHS (ONCE AT NIGHT)
     Route: 047

REACTIONS (7)
  - Oesophageal carcinoma [Unknown]
  - Oesophageal pain [Recovered/Resolved]
  - Dysphagia [Recovered/Resolved]
  - Pain [Unknown]
  - Weight decreased [Recovering/Resolving]
  - Acute oesophageal mucosal lesion [Unknown]
  - Eating disorder [Recovered/Resolved]

NARRATIVE: CASE EVENT DATE: 201912
